FAERS Safety Report 18620321 (Version 1)
Quarter: 2020Q4

REPORT INFORMATION
  Report Type: Spontaneous
  Country: US (occurrence: US)
  Receive Date: 20201215
  Receipt Date: 20201215
  Transmission Date: 20210114
  Serious: Yes (Other)
  Sender: FDA-Public Use
  Company Number: US-BAYER-2020-268726

PATIENT
  Age: 58 Year
  Sex: Female

DRUGS (8)
  1. TICAGRELOR. [Interacting]
     Active Substance: TICAGRELOR
     Indication: CORONARY ARTERY THROMBOSIS
  2. CLOPIDOGREL [Suspect]
     Active Substance: CLOPIDOGREL BISULFATE
     Indication: ACUTE MYOCARDIAL INFARCTION
  3. ACETYLSALICYLIC ACID [Interacting]
     Active Substance: ASPIRIN
     Indication: THROMBOSIS
  4. HEPARIN [Interacting]
     Active Substance: HEPARIN SODIUM
     Indication: THROMBOSIS
  5. ACETYLSALICYLIC ACID [Suspect]
     Active Substance: ASPIRIN
     Indication: CORONARY ARTERY THROMBOSIS
  6. WARFARIN [Interacting]
     Active Substance: WARFARIN
  7. TICAGRELOR. [Interacting]
     Active Substance: TICAGRELOR
     Indication: THROMBOSIS
  8. ACETYLSALICYLIC ACID [Interacting]
     Active Substance: ASPIRIN
     Indication: ACUTE MYOCARDIAL INFARCTION

REACTIONS (3)
  - Haemorrhage intracranial [None]
  - Labelled drug-drug interaction medication error [None]
  - Paroxysmal nocturnal haemoglobinuria [None]
